FAERS Safety Report 7958549-0 (Version None)
Quarter: 2011Q4

REPORT INFORMATION
  Report Type: 
  Country: None (occurrence: None)
  Receive Date: 20111206
  Receipt Date: 20111201
  Transmission Date: 20120403
  Serious: No
  Sender: FDA-Public Use
  Company Number: US-BIOGENIDEC-2011BI020183

PATIENT
  Age: 45 Year
  Sex: Male

DRUGS (1)
  1. TYSABRI [Suspect]
     Indication: MULTIPLE SCLEROSIS
     Route: 042
     Dates: start: 20110428

REACTIONS (14)
  - PERIPHERAL COLDNESS [None]
  - ARTHRALGIA [None]
  - GAIT DISTURBANCE [None]
  - CONTUSION [None]
  - HEMIPARESIS [None]
  - JOINT SWELLING [None]
  - FEELING COLD [None]
  - GENERAL PHYSICAL HEALTH DETERIORATION [None]
  - WEIGHT INCREASED [None]
  - MOBILITY DECREASED [None]
  - MUSCULAR WEAKNESS [None]
  - FATIGUE [None]
  - LIGAMENT SPRAIN [None]
  - MUSCLE TIGHTNESS [None]
